FAERS Safety Report 4719168-2 (Version None)
Quarter: 2005Q3

REPORT INFORMATION
  Report Type: 
  Country: None (occurrence: None)
  Receive Date: 20050719
  Receipt Date: 20050628
  Transmission Date: 20060218
  Serious: Yes (Death)
  Sender: FDA-Public Use
  Company Number: 2005093391

PATIENT
  Age: 71 Year
  Sex: Male

DRUGS (1)
  1. CARDURA XL [Suspect]
     Indication: BENIGN PROSTATIC HYPERPLASIA
     Dosage: 4 MG (4 MG, DAILY INTERVAL)
     Dates: start: 20010502, end: 20041119

REACTIONS (3)
  - CARDIAC ARREST [None]
  - DYSPNOEA [None]
  - RESPIRATORY DISORDER [None]
